FAERS Safety Report 8594348 (Version 4)
Quarter: 2012Q4

REPORT INFORMATION
  Report Type: 
  Country: JP (occurrence: JP)
  Receive Date: 20120604
  Receipt Date: 20121002
  Transmission Date: 20130627
  Serious: Yes (Death, Hospitalization, Other)
  Sender: FDA-Public Use
  Company Number: JP-GILEAD-2012-0055803

PATIENT
  Age: 79 Year
  Sex: Female

DRUGS (14)
  1. AMBRISENTAN [Suspect]
     Indication: PULMONARY ARTERIAL HYPERTENSION
     Dosage: 2.5MG Per day
     Route: 048
     Dates: start: 20120511, end: 20120514
  2. REVATIO [Concomitant]
     Indication: PULMONARY ARTERIAL HYPERTENSION
     Dosage: 20MCG Twice per day
     Route: 048
     Dates: start: 20120428
  3. BERASUS [Concomitant]
     Indication: PULMONARY ARTERIAL HYPERTENSION
     Dosage: 60MCG Twice per day
     Route: 048
     Dates: start: 20120505
  4. ARTIST [Concomitant]
     Indication: HYPERTENSION
     Dosage: 1.25MG Per day
     Route: 048
  5. ARTIST [Concomitant]
     Dosage: 1.25MG Per day
     Route: 048
  6. ARTIST [Concomitant]
     Dosage: 1.25MG Per day
     Route: 048
  7. RENIVACE [Concomitant]
     Indication: HYPERTENSION
     Dosage: 1.25MG Per day
     Route: 048
  8. RENIVACE [Concomitant]
     Dosage: 1.25MG Per day
     Route: 048
  9. RENIVACE [Concomitant]
     Dosage: 1.25MG Per day
     Route: 048
  10. EPOPROSTENOL [Concomitant]
     Indication: PULMONARY ARTERIAL HYPERTENSION
     Route: 042
  11. TAKEPRON [Concomitant]
     Indication: GASTROOESOPHAGEAL REFLUX DISEASE
     Dosage: 15 mg, BID
     Route: 048
  12. TAKEPRON [Concomitant]
     Dosage: 15MG Per day
     Route: 048
  13. TAKEPRON [Concomitant]
     Dosage: 15MG Per day
     Route: 048
  14. TAKEPRON [Concomitant]
     Dosage: 15MG Per day
     Route: 048

REACTIONS (9)
  - Circulatory collapse [Fatal]
  - Circulatory collapse [Fatal]
  - Pyrexia [Unknown]
  - Pulmonary hypertension [Unknown]
  - Urinary tract infection [Unknown]
  - Ileus [Unknown]
  - Infection [Unknown]
  - General physical health deterioration [Unknown]
  - Anaemia [Recovering/Resolving]
